FAERS Safety Report 8890887 (Version 3)
Quarter: 2012Q4

REPORT INFORMATION
  Report Type: Report from Study
  Country: US (occurrence: US)
  Receive Date: 20121107
  Receipt Date: 20121219
  Transmission Date: 20130627
  Serious: Yes (Congenital Anomaly)
  Sender: FDA-Public Use
  Company Number: US-GILEAD-2012-0063771

PATIENT
  Age: 0 Year
  Sex: Female

DRUGS (5)
  1. EMTRICITABINE/TENOFOVIR DISOPROXIL FUMARATE [Suspect]
     Indication: HIV INFECTION
     Dosage: 1 DF, QD
     Route: 064
  2. KALETRA [Concomitant]
     Indication: HIV INFECTION
     Dosage: 4 DF, QD
     Route: 064
     Dates: end: 20111206
  3. KALETRA [Concomitant]
     Dosage: 6 DF, QD
     Route: 064
     Dates: start: 20111221
  4. PROGESTERONE [Concomitant]
     Indication: PRODUCT USED FOR UNKNOWN INDICATION
     Route: 064
  5. FOLATE [Concomitant]
     Indication: SUPPLEMENTATION THERAPY
     Route: 064

REACTIONS (1)
  - Ovarian cyst [Recovered/Resolved]
